FAERS Safety Report 6272722-1 (Version None)
Quarter: 2009Q3

REPORT INFORMATION
  Report Type: 
  Country: None (occurrence: None)
  Receive Date: 20090717
  Receipt Date: 20090708
  Transmission Date: 20100115
  Serious: Yes (Other)
  Sender: FDA-Public Use
  Company Number: PHHY2009SE21593

PATIENT
  Sex: Female

DRUGS (3)
  1. EXELON [Suspect]
     Indication: DEMENTIA ALZHEIMER'S TYPE
     Dosage: UNK
     Route: 062
     Dates: start: 20090301
  2. EXELON [Suspect]
     Dosage: 9 MG/24H
     Route: 062
  3. EXELON [Suspect]
     Dosage: 4.6 MG/24 H
     Route: 062

REACTIONS (1)
  - DYSURIA [None]
